FAERS Safety Report 4594501-3 (Version None)
Quarter: 2005Q1

REPORT INFORMATION
  Report Type: 
  Country: None (occurrence: None)
  Receive Date: 20050301
  Receipt Date: 20040401
  Transmission Date: 20050727
  Serious: No
  Sender: FDA-Public Use
  Company Number: US-GLAXOSMITHKLINE-A0505588A

PATIENT
  Sex: Female

DRUGS (1)
  1. VALTREX [Suspect]
     Dosage: 1G TWICE PER DAY
     Route: 048

REACTIONS (1)
  - DRUG INEFFECTIVE [None]
